FAERS Safety Report 6744995-X (Version None)
Quarter: 2010Q2

REPORT INFORMATION
  Report Type: 
  Country: None (occurrence: None)
  Receive Date: 20100527
  Receipt Date: 20100525
  Transmission Date: 20101027
  Serious: Yes (Death)
  Sender: FDA-Public Use
  Company Number: NL-ROCHE-705028

PATIENT
  Sex: Male

DRUGS (4)
  1. CAPECITABINE [Suspect]
     Indication: COLORECTAL CANCER
     Dosage: DATE OF LAST CYCLE: 22 APRIL 2010.
     Route: 048
     Dates: start: 20090618
  2. BEVACIZUMAB [Suspect]
     Indication: COLORECTAL CANCER
     Dosage: DATE OF LAST CYCLE: 22 APRIL 2010.
     Route: 042
     Dates: start: 20090618
  3. OXALIPLATIN [Suspect]
     Indication: COLORECTAL CANCER
     Dosage: DATE OF LAST CYCLE: 29 SEP 2009
     Route: 042
     Dates: start: 20090618
  4. AMLODIPINE [Concomitant]

REACTIONS (1)
  - MYOCARDIAL ISCHAEMIA [None]
